FAERS Safety Report 23450294 (Version 1)
Quarter: 2024Q1

REPORT INFORMATION
  Report Type: Spontaneous
  Country: CN (occurrence: CN)
  Receive Date: 20240129
  Receipt Date: 20240129
  Transmission Date: 20240410
  Serious: Yes (Life-Threatening, Other)
  Sender: FDA-Public Use
  Company Number: CN-MLMSERVICE-20240115-4773282-1

PATIENT
  Age: 43 Year
  Sex: Female

DRUGS (32)
  1. THALIDOMIDE [Suspect]
     Active Substance: THALIDOMIDE
     Indication: Peripheral T-cell lymphoma unspecified stage IV
     Dosage: 4TH LINE OF THERAPY
     Route: 048
     Dates: start: 20181218
  2. CLADRIBINE [Suspect]
     Active Substance: CLADRIBINE
     Indication: Peripheral T-cell lymphoma unspecified stage IV
     Dosage: 4TH LINE OF THERAPY
     Dates: start: 20181218
  3. CISPLATIN [Suspect]
     Active Substance: CISPLATIN
     Indication: Peripheral T-cell lymphoma unspecified stage IV
     Dosage: 2ND LINE OF THERAPY
     Dates: start: 20180908
  4. CISPLATIN [Suspect]
     Active Substance: CISPLATIN
     Dosage: 2ND LINE OF THERAPY
     Dates: start: 20181001
  5. TUCIDINOSTAT [Suspect]
     Active Substance: TUCIDINOSTAT
     Indication: Peripheral T-cell lymphoma unspecified stage IV
     Dosage: CHIDAMIDE (20 MG, TWICE A WEEK), 2ND LINE OF THERAPY
     Route: 048
     Dates: start: 20181001
  6. TUCIDINOSTAT [Suspect]
     Active Substance: TUCIDINOSTAT
     Dosage: CHIDAMIDE (20 MG, TWICE A WEEK),  3RD LINE OF THERAPY
     Route: 048
     Dates: start: 20181203
  7. PEGASPARGASE [Suspect]
     Active Substance: PEGASPARGASE
     Indication: Peripheral T-cell lymphoma unspecified stage IV
     Dates: start: 20180629
  8. PEGASPARGASE [Suspect]
     Active Substance: PEGASPARGASE
     Dates: start: 20180808
  9. CYTARABINE [Suspect]
     Active Substance: CYTARABINE
     Indication: Peripheral T-cell lymphoma unspecified stage IV
     Dosage: 4TH LINE OF THERAPY
     Dates: start: 20181218
  10. ETOPOSIDE [Suspect]
     Active Substance: ETOPOSIDE
     Indication: Peripheral T-cell lymphoma unspecified stage IV
     Dosage: 3RD LINE OF THERAPY
     Dates: start: 20181109
  11. ETOPOSIDE [Suspect]
     Active Substance: ETOPOSIDE
     Dosage: 3RD LINE OF THERAPY
     Dates: start: 20181203
  12. BORTEZOMIB [Suspect]
     Active Substance: BORTEZOMIB
     Indication: Peripheral T-cell lymphoma unspecified stage IV
     Dosage: 5TH LINE OF THERAPY
     Dates: start: 20190114
  13. DOXORUBICIN [Suspect]
     Active Substance: DOXORUBICIN
     Indication: Peripheral T-cell lymphoma unspecified stage IV
     Dosage: 3RD LINE OF THERAPY, LIPOSOME
     Dates: start: 20181109
  14. DOXORUBICIN [Suspect]
     Active Substance: DOXORUBICIN
     Dosage: 3RD LINE OF THERAPY, LIPOSOME
     Dates: start: 20181203
  15. EPIRUBICIN [Suspect]
     Active Substance: EPIRUBICIN
     Indication: Peripheral T-cell lymphoma unspecified stage IV
     Dates: start: 20180629
  16. EPIRUBICIN [Suspect]
     Active Substance: EPIRUBICIN
     Dates: start: 20180808
  17. DEXAMETHASONE [Suspect]
     Active Substance: DEXAMETHASONE
     Indication: Peripheral T-cell lymphoma unspecified stage IV
     Dosage: 3RD LINE OF THERAPY
     Dates: start: 20180908
  18. DEXAMETHASONE [Suspect]
     Active Substance: DEXAMETHASONE
     Dosage: 3RD LINE OF THERAPY
     Dates: start: 20181109
  19. DEXAMETHASONE [Suspect]
     Active Substance: DEXAMETHASONE
     Dosage: 3RD LINE OF THERAPY
     Dates: start: 20181203
  20. DEXAMETHASONE [Suspect]
     Active Substance: DEXAMETHASONE
     Dosage: 5TH LINE OF THERAPY
     Dates: start: 20190114
  21. GEMCITABINE [Suspect]
     Active Substance: GEMCITABINE
     Indication: Peripheral T-cell lymphoma unspecified stage IV
     Dosage: 2ND LINE OF THERAPY
     Dates: start: 20180908
  22. GEMCITABINE [Suspect]
     Active Substance: GEMCITABINE
     Dosage: 2ND LINE OF THERAPY
     Dates: start: 20181001
  23. PREDNISONE [Suspect]
     Active Substance: PREDNISONE
     Indication: Peripheral T-cell lymphoma unspecified stage IV
     Dates: start: 20180629
  24. PREDNISONE [Suspect]
     Active Substance: PREDNISONE
     Dates: start: 20180808
  25. METHOTREXATE [Suspect]
     Active Substance: METHOTREXATE
     Indication: Peripheral T-cell lymphoma unspecified stage IV
     Dates: start: 20180716
  26. METHOTREXATE [Suspect]
     Active Substance: METHOTREXATE
     Dates: start: 20180823
  27. VENETOCLAX [Suspect]
     Active Substance: VENETOCLAX
     Indication: Peripheral T-cell lymphoma unspecified stage IV
     Dosage: 5TH LINE OF THERAPY
     Dates: start: 20190114
  28. VINDESINE [Suspect]
     Active Substance: VINDESINE
     Indication: Peripheral T-cell lymphoma unspecified stage IV
     Dates: start: 20180629
  29. VINDESINE [Suspect]
     Active Substance: VINDESINE
     Dates: start: 20180808
  30. CYCLOPHOSPHAMIDE [Suspect]
     Active Substance: CYCLOPHOSPHAMIDE
     Indication: Peripheral T-cell lymphoma unspecified stage IV
     Dates: start: 20180629
  31. CYCLOPHOSPHAMIDE [Suspect]
     Active Substance: CYCLOPHOSPHAMIDE
     Dates: start: 20180808
  32. DECITABINE [Suspect]
     Active Substance: DECITABINE
     Indication: Peripheral T-cell lymphoma unspecified stage IV
     Dosage: 6TH LINE OF THERAPY, 25 MG IV D2-6 (15 MG/M2, DAYS 1 TO 5)
     Route: 042
     Dates: start: 20190129

REACTIONS (5)
  - Staphylococcal bacteraemia [Unknown]
  - Staphylococcal infection [Unknown]
  - Myelosuppression [Unknown]
  - Pneumonia bacterial [Unknown]
  - Off label use [Unknown]

NARRATIVE: CASE EVENT DATE: 20190101
